FAERS Safety Report 17730577 (Version 1)
Quarter: 2020Q2

REPORT INFORMATION
  Report Type: Spontaneous
  Country: ES (occurrence: ES)
  Receive Date: 20200430
  Receipt Date: 20200430
  Transmission Date: 20200714
  Serious: Yes (Other)
  Sender: FDA-Public Use
  Company Number: ES-EMD SERONO-9160393

PATIENT
  Sex: Male

DRUGS (1)
  1. CLADRIBINE. [Suspect]
     Active Substance: CLADRIBINE
     Indication: PRODUCT USED FOR UNKNOWN INDICATION
     Dosage: FIRST WEEK THERAPY

REACTIONS (2)
  - Acute respiratory failure [Recovered/Resolved]
  - Respiratory tract infection [Recovered/Resolved]
